FAERS Safety Report 4358009-2 (Version None)
Quarter: 2004Q2

REPORT INFORMATION
  Report Type: 
  Country: None (occurrence: None)
  Receive Date: 20040511
  Receipt Date: 20040430
  Transmission Date: 20050107
  Serious: Yes (Hospitalization)
  Sender: FDA-Public Use
  Company Number: MK200405-0047-1

PATIENT
  Age: 35 Year
  Sex: Male

DRUGS (6)
  1. TOFRANIL [Suspect]
     Indication: DEPRESSION
     Dosage: 200 MG, DAILY
     Dates: start: 20030401, end: 20040225
  2. AMOXAN [Concomitant]
  3. EPADEL [Concomitant]
  4. ROHYPNOL [Concomitant]
  5. TINELAC [Concomitant]
  6. PAXIL [Concomitant]

REACTIONS (11)
  - CONVULSION [None]
  - DIZZINESS [None]
  - HEPATIC ENZYME ABNORMAL [None]
  - HYPERHIDROSIS [None]
  - HYPERURICAEMIA [None]
  - HYPOAESTHESIA ORAL [None]
  - LOSS OF CONSCIOUSNESS [None]
  - PALPITATIONS [None]
  - RENAL FAILURE ACUTE [None]
  - RHABDOMYOLYSIS [None]
  - SINUS TACHYCARDIA [None]
